FAERS Safety Report 10387963 (Version 2)
Quarter: 2014Q3

REPORT INFORMATION
  Report Type: Spontaneous
  Country: PT (occurrence: None)
  Receive Date: 20140813
  Receipt Date: 20140827
  Transmission Date: 20150326
  Serious: Yes (Other)
  Sender: FDA-Public Use
  Company Number: AUR-APL-2014-08561

PATIENT
  Age: 43 Year
  Sex: Male

DRUGS (1)
  1. CLARITHROMYCIN (CLARITHROMYCIN) UNKNOWN [Suspect]
     Active Substance: CLARITHROMYCIN
     Indication: RESPIRATORY TRACT INFECTION
     Dosage: UNK

REACTIONS (2)
  - Rash [None]
  - Drug eruption [None]
